FAERS Safety Report 25056197 (Version 1)
Quarter: 2025Q1

REPORT INFORMATION
  Report Type: Spontaneous
  Country: RU (occurrence: RU)
  Receive Date: 20250309
  Receipt Date: 20250309
  Transmission Date: 20250409
  Serious: Yes (Other)
  Sender: MERCK KGAA
  Company Number: RU-Merck Healthcare KGaA-2025010628

PATIENT
  Age: 72 Year
  Sex: Male

DRUGS (3)
  1. EUTHYROX [Suspect]
     Active Substance: LEVOTHYROXINE SODIUM
     Indication: Hypothyroidism
  2. EUTHYROX [Suspect]
     Active Substance: LEVOTHYROXINE SODIUM
  3. EUTHYROX [Suspect]
     Active Substance: LEVOTHYROXINE SODIUM

REACTIONS (8)
  - Intestinal obstruction [Unknown]
  - Dyspepsia [Unknown]
  - Hypoaesthesia [Unknown]
  - Saliva altered [Unknown]
  - Eye discharge [Unknown]
  - Oral pain [Unknown]
  - Blood thyroid stimulating hormone increased [Unknown]
  - Suspected product quality issue [Unknown]
